FAERS Safety Report 21208918 (Version 1)
Quarter: 2022Q3

REPORT INFORMATION
  Report Type: Spontaneous
  Country: US (occurrence: None)
  Receive Date: 20220812
  Receipt Date: 20220812
  Transmission Date: 20221027
  Serious: Yes (Disabling)
  Sender: FDA-Public Use
  Company Number: None

PATIENT
  Age: 79 Year
  Sex: Male
  Weight: 85.5 kg

DRUGS (26)
  1. EYLEA [Suspect]
     Active Substance: AFLIBERCEPT
     Indication: Macular degeneration
     Dosage: OTHER QUANTITY : 1 INJECTION(S);?OTHER FREQUENCY : ONE TIME;?
     Route: 047
     Dates: start: 20220804, end: 20220804
  2. PLETAL [Concomitant]
  3. TOPROL XL [Concomitant]
     Active Substance: METOPROLOL SUCCINATE
  4. ZETIA [Concomitant]
     Active Substance: EZETIMIBE
  5. LIPITOR [Concomitant]
     Active Substance: ATORVASTATIN CALCIUM
  6. COGENTIN [Concomitant]
     Active Substance: BENZTROPINE MESYLATE
  7. LOSARTAN [Concomitant]
     Active Substance: LOSARTAN
  8. CHLORTHALIDONE [Concomitant]
  9. PRILOSEC [Concomitant]
     Active Substance: OMEPRAZOLE MAGNESIUM
  10. VITAMIN D2 [Concomitant]
  11. Avastin [Concomitant]
  12. MUPIROCIN [Concomitant]
     Active Substance: MUPIROCIN
  13. VASCEPA [Concomitant]
  14. XARELTO [Concomitant]
     Active Substance: RIVAROXABAN
  15. Reishi [Concomitant]
  16. mushroom [Concomitant]
  17. Ferretia [Concomitant]
  18. Metamucil [Concomitant]
  19. NIACIN [Concomitant]
     Active Substance: NIACIN
  20. Aspirin 81mg [Concomitant]
  21. AREDS 2 [Concomitant]
  22. Turmeric [Concomitant]
  23. Probiotic [Concomitant]
  24. VITAMIN C [Concomitant]
     Active Substance: ASCORBIC ACID
  25. Cinnamon [Concomitant]
  26. CBD Salve [Concomitant]

REACTIONS (6)
  - Visual impairment [None]
  - Headache [None]
  - Intraocular pressure increased [None]
  - Balance disorder [None]
  - Cold sweat [None]
  - Dizziness [None]

NARRATIVE: CASE EVENT DATE: 20220804
